FAERS Safety Report 13573101 (Version 2)
Quarter: 2017Q2

REPORT INFORMATION
  Report Type: Spontaneous
  Country: US (occurrence: US)
  Receive Date: 20170523
  Receipt Date: 20170623
  Transmission Date: 20170830
  Serious: No
  Sender: FDA-Public Use
  Company Number: US-VERTEX PHARMACEUTICALS-2017-002605

PATIENT
  Age: 15 Year
  Sex: Male
  Weight: 58 kg

DRUGS (1)
  1. ORKAMBI [Suspect]
     Active Substance: IVACAFTOR\LUMACAFTOR
     Indication: CYSTIC FIBROSIS
     Dosage: UNK, BID
     Route: 048
     Dates: start: 20170329

REACTIONS (1)
  - Extra dose administered [Unknown]

NARRATIVE: CASE EVENT DATE: 20170510
